FAERS Safety Report 8939190 (Version 1)
Quarter: 2012Q4

REPORT INFORMATION
  Report Type: 
  Country: US (occurrence: US)
  Receive Date: 20121203
  Receipt Date: 20121203
  Transmission Date: 20130627
  Serious: No
  Sender: FDA-Public Use
  Company Number: US-PFIZER INC-2012302212

PATIENT
  Age: 30 Year
  Sex: Female
  Weight: 74.8 kg

DRUGS (2)
  1. PRISTIQ [Suspect]
     Indication: ANXIETY
     Dosage: 50 mg, Daily
     Dates: start: 20120924, end: 20121128
  2. ORTHO TRI-CYCLEN LO [Concomitant]
     Indication: BIRTH CONTROL
     Dosage: UNK,daily

REACTIONS (4)
  - Drug ineffective [Unknown]
  - Withdrawal syndrome [Not Recovered/Not Resolved]
  - Dizziness [Not Recovered/Not Resolved]
  - Nausea [Not Recovered/Not Resolved]
